FAERS Safety Report 8978013 (Version 2)
Quarter: 2013Q1

REPORT INFORMATION
  Report Type: Spontaneous
  Country: GB (occurrence: GB)
  Receive Date: 20121220
  Receipt Date: 20130219
  Transmission Date: 20140127
  Serious: Yes (Other)
  Sender: FDA-Public Use
  Company Number: GB-009507513-1212GBR004416

PATIENT
  Age: 21 Year
  Sex: Female

DRUGS (2)
  1. NEXPLANON [Suspect]
     Indication: CONTRACEPTION
     Dosage: 68 MG, UNK
     Route: 059
     Dates: start: 20120820, end: 20121015
  2. MICROGYNON [Concomitant]

REACTIONS (5)
  - Suicidal ideation [Unknown]
  - Negative thoughts [Unknown]
  - Condition aggravated [Unknown]
  - Paranoia [Unknown]
  - Mood swings [Recovered/Resolved]
